FAERS Safety Report 7114428-2 (Version None)
Quarter: 2010Q4

REPORT INFORMATION
  Report Type: 
  Country: None (occurrence: None)
  Receive Date: 20101119
  Receipt Date: 20101115
  Transmission Date: 20110411
  Serious: Yes (Other)
  Sender: FDA-Public Use
  Company Number: DE-GENENTECH-309300

PATIENT

DRUGS (1)
  1. NUTROPIN [Suspect]
     Indication: BRAIN NEOPLASM
     Dosage: 0.025 MG/KG, QD

REACTIONS (1)
  - NEOPLASM MALIGNANT [None]
